FAERS Safety Report 18036558 (Version 1)
Quarter: 2020Q3

REPORT INFORMATION
  Report Type: Spontaneous
  Country: FR (occurrence: FR)
  Receive Date: 20200717
  Receipt Date: 20200717
  Transmission Date: 20201103
  Serious: Yes (Hospitalization)
  Sender: FDA-Public Use
  Company Number: FR-ACCORD-190983

PATIENT
  Age: 60 Year
  Sex: Female
  Weight: 60 kg

DRUGS (11)
  1. VENTOLINE [Concomitant]
     Active Substance: ALBUTEROL
  2. TRAMADOL. [Concomitant]
     Active Substance: TRAMADOL
  3. DULOXETINE. [Concomitant]
     Active Substance: DULOXETINE
  4. METHYLPREDNISOLONE MYLAN [Concomitant]
     Active Substance: METHYLPREDNISOLONE
  5. ONDANSETRON ACCORD [Concomitant]
     Active Substance: ONDANSETRON
  6. CARBOPLATINE ACCORD [Suspect]
     Active Substance: CARBOPLATIN
     Indication: NEUROENDOCRINE TUMOUR
     Route: 041
     Dates: start: 20180122, end: 20180122
  7. EMEND [Concomitant]
     Active Substance: APREPITANT
  8. SERESTA [Concomitant]
     Active Substance: OXAZEPAM
  9. ETOPOSIDE TEVA [Suspect]
     Active Substance: ETOPOSIDE
     Indication: NEUROENDOCRINE TUMOUR
     Route: 041
     Dates: start: 20180122, end: 20180124
  10. OLANZAPINE. [Concomitant]
     Active Substance: OLANZAPINE
  11. SERETIDE [Concomitant]
     Active Substance: FLUTICASONE PROPIONATE\SALMETEROL XINAFOATE

REACTIONS (3)
  - General physical health deterioration [Recovered/Resolved]
  - Thrombocytopenia [Recovering/Resolving]
  - Anaemia [Recovering/Resolving]

NARRATIVE: CASE EVENT DATE: 20180205
